FAERS Safety Report 8501525-X (Version None)
Quarter: 2012Q3

REPORT INFORMATION
  Report Type: 
  Country: None (occurrence: None)
  Receive Date: 20120710
  Receipt Date: 20120704
  Transmission Date: 20120928
  Serious: Yes (Other)
  Sender: FDA-Public Use
  Company Number: DE-PFIZER INC-2012160841

PATIENT
  Sex: Female

DRUGS (2)
  1. XALATAN [Suspect]
     Dosage: 1 DF, 1X/DAY
  2. XALATAN [Suspect]
     Dosage: 1 DF, 2X/DAY

REACTIONS (3)
  - DRUG EFFECT DECREASED [None]
  - GLAUCOMA [None]
  - EYE IRRITATION [None]
